FAERS Safety Report 25284000 (Version 2)
Quarter: 2025Q2

REPORT INFORMATION
  Report Type: Spontaneous
  Country: FR (occurrence: FR)
  Receive Date: 20250508
  Receipt Date: 20250530
  Transmission Date: 20250717
  Serious: Yes (Other)
  Sender: JOHNSON AND JOHNSON
  Company Number: FR-JNJFOC-20250217311

PATIENT
  Age: 8 Decade
  Sex: Female
  Weight: 73 kg

DRUGS (2)
  1. RYBREVANT [Suspect]
     Active Substance: AMIVANTAMAB-VMJW
     Indication: Non-small cell lung cancer metastatic
     Route: 065
     Dates: end: 20250114
  2. RYBREVANT [Suspect]
     Active Substance: AMIVANTAMAB-VMJW
     Route: 065
     Dates: end: 20250114

REACTIONS (2)
  - Haematotoxicity [Unknown]
  - Inappropriate schedule of product administration [Unknown]
